FAERS Safety Report 15547134 (Version 1)
Quarter: 2018Q4

REPORT INFORMATION
  Report Type: Spontaneous
  Country: US (occurrence: US)
  Receive Date: 20181024
  Receipt Date: 20181024
  Transmission Date: 20190205
  Serious: No
  Sender: FDA-Public Use
  Company Number: US-PFIZER INC-2017011924

PATIENT
  Age: 73 Year
  Sex: Female

DRUGS (6)
  1. REVATIO [Suspect]
     Active Substance: SILDENAFIL CITRATE
     Indication: GASTROOESOPHAGEAL REFLUX DISEASE
  2. REVATIO [Suspect]
     Active Substance: SILDENAFIL CITRATE
     Indication: PULMONARY HYPERTENSION
     Dosage: 20 MG, 3X/DAY
  3. REVATIO [Suspect]
     Active Substance: SILDENAFIL CITRATE
     Indication: RHINITIS ALLERGIC
  4. REVATIO [Suspect]
     Active Substance: SILDENAFIL CITRATE
     Indication: SLEEP APNOEA SYNDROME
  5. REVATIO [Suspect]
     Active Substance: SILDENAFIL CITRATE
     Indication: ACUTE SINUSITIS
  6. REVATIO [Suspect]
     Active Substance: SILDENAFIL CITRATE
     Indication: EMPHYSEMA

REACTIONS (1)
  - Product use in unapproved indication [Unknown]
